FAERS Safety Report 7833511-7 (Version None)
Quarter: 2011Q4

REPORT INFORMATION
  Report Type: 
  Country: None (occurrence: None)
  Receive Date: 20111024
  Receipt Date: 20111011
  Transmission Date: 20120403
  Serious: Yes (Hospitalization, Other)
  Sender: FDA-Public Use
  Company Number: US-BAYER-2011-007056

PATIENT
  Age: 38 Year
  Sex: Female
  Weight: 68.027 kg

DRUGS (6)
  1. ASTHMA/BREATHING MEDICATIONS [Concomitant]
     Indication: ASTHMA
     Dosage: UNK
     Dates: start: 20040101, end: 20100101
  2. YAZ [Suspect]
     Indication: PREMENSTRUAL SYNDROME
     Dosage: UNK
     Dates: end: 20090214
  3. IBUPROFEN [Concomitant]
     Dosage: UNK
     Dates: start: 20040101, end: 20100101
  4. ANTIHYPERTENSIVES [Concomitant]
     Indication: HYPERTENSION
     Dosage: UNK
     Dates: start: 20080101, end: 20090101
  5. MEDICATION FOR MIGRAINE HEADACHES [Concomitant]
     Indication: MIGRAINE
     Dosage: UNK
     Dates: start: 20040101, end: 20100101
  6. LEXAPRO [Concomitant]
     Indication: ANXIETY
     Dosage: UNK
     Dates: start: 20080101, end: 20100101

REACTIONS (6)
  - EMOTIONAL DISTRESS [None]
  - FEAR [None]
  - INJURY [None]
  - ANXIETY [None]
  - PAIN [None]
  - PULMONARY EMBOLISM [None]
